FAERS Safety Report 12692982 (Version 1)
Quarter: 2016Q3

REPORT INFORMATION
  Report Type: Spontaneous
  Country: BR (occurrence: BR)
  Receive Date: 20160829
  Receipt Date: 20160829
  Transmission Date: 20161109
  Serious: Yes (Death, Hospitalization)
  Sender: FDA-Public Use
  Company Number: BR-BAYER-2016-145271

PATIENT
  Age: 74 Year
  Sex: Female

DRUGS (2)
  1. NEXAVAR [Suspect]
     Active Substance: SORAFENIB
     Indication: RENAL CANCER
     Dosage: 400 MG, QD
     Route: 048
     Dates: start: 20160720, end: 2016
  2. NEXAVAR [Suspect]
     Active Substance: SORAFENIB
     Indication: RENAL CANCER
     Dosage: 800 MG, QD
     Route: 048
     Dates: start: 2016, end: 20160815

REACTIONS (6)
  - Asthenia [Recovering/Resolving]
  - Lung infection [Fatal]
  - Nausea [Recovering/Resolving]
  - Pyrexia [Recovering/Resolving]
  - Malaise [Recovering/Resolving]
  - Pharyngitis [Fatal]

NARRATIVE: CASE EVENT DATE: 20160721
